FAERS Safety Report 9416276 (Version 2)
Quarter: 2014Q2

REPORT INFORMATION
  Report Type: Spontaneous
  Country: US (occurrence: US)
  Receive Date: 20130724
  Receipt Date: 20140430
  Transmission Date: 20141212
  Serious: Yes (Hospitalization)
  Sender: FDA-Public Use
  Company Number: US-BAYER-2013-089030

PATIENT
  Age: 23 Year
  Sex: Female
  Weight: 79.37 kg

DRUGS (6)
  1. YAZ [Suspect]
  2. YASMIN [Suspect]
     Dosage: UNK
     Dates: start: 20110908, end: 20111004
  3. NORCO [Concomitant]
     Indication: BACK PAIN
  4. NORCO [Concomitant]
     Indication: PAIN IN EXTREMITY
  5. MILK OF MAGNESIA [Concomitant]
     Indication: CONSTIPATION
  6. DULCOLAX [BISACODYL] [Concomitant]
     Indication: CONSTIPATION

REACTIONS (7)
  - Deep vein thrombosis [None]
  - Injury [None]
  - Pain [None]
  - Emotional distress [None]
  - Depression [None]
  - Fear of death [None]
  - Nervousness [None]
